FAERS Safety Report 10512162 (Version 2)
Quarter: 2014Q4

REPORT INFORMATION
  Report Type: Spontaneous
  Country: US (occurrence: US)
  Receive Date: 20141010
  Receipt Date: 20141111
  Transmission Date: 20150528
  Serious: No
  Sender: FDA-Public Use
  Company Number: US-PFIZER INC-2014277405

PATIENT
  Age: 59 Year
  Sex: Female
  Weight: 111.57 kg

DRUGS (3)
  1. XELJANZ [Suspect]
     Active Substance: TOFACITINIB CITRATE
     Indication: RHEUMATOID ARTHRITIS
     Dosage: 5 MG, 2X/DAY
     Route: 048
     Dates: start: 201402, end: 20140920
  2. XELJANZ [Suspect]
     Active Substance: TOFACITINIB CITRATE
     Dosage: 5 MG, UNK
  3. XELJANZ [Suspect]
     Active Substance: TOFACITINIB CITRATE
     Dosage: 5 MG, 2X/DAY
     Dates: start: 20140927

REACTIONS (6)
  - Blood cholesterol increased [Unknown]
  - Hypoaesthesia [Unknown]
  - Sinusitis [Recovered/Resolved]
  - Dizziness [Recovering/Resolving]
  - Paraesthesia [Unknown]
  - Blood triglycerides increased [Unknown]
